FAERS Safety Report 26031443 (Version 1)
Quarter: 2025Q4

REPORT INFORMATION
  Report Type: Spontaneous
  Country: PK (occurrence: PK)
  Receive Date: 20251112
  Receipt Date: 20251112
  Transmission Date: 20260117
  Serious: Yes (Hospitalization, Other)
  Sender: PHARMOBEDIENT CONSULTING, LLC
  Company Number: PK-Pharmobedient-000454

PATIENT
  Age: 31 Year
  Sex: Female

DRUGS (1)
  1. AMLODIPINE BESYLATE [Suspect]
     Active Substance: AMLODIPINE BESYLATE
     Indication: Product used for unknown indication

REACTIONS (9)
  - Intentional overdose [Unknown]
  - Toxicity to various agents [Unknown]
  - Vertigo [Unknown]
  - Vomiting [Unknown]
  - Lethargy [Unknown]
  - Non-cardiogenic pulmonary oedema [Recovering/Resolving]
  - Hypotension [Recovering/Resolving]
  - Sinus tachycardia [Unknown]
  - Respiratory distress [Unknown]
